FAERS Safety Report 15841829 (Version 1)
Quarter: 2019Q1

REPORT INFORMATION
  Report Type: Spontaneous
  Country: IT (occurrence: IT)
  Receive Date: 20190118
  Receipt Date: 20190118
  Transmission Date: 20190417
  Serious: Yes (Other)
  Sender: FDA-Public Use
  Company Number: PHHY2019IT009615

PATIENT
  Age: 66 Year
  Sex: Female

DRUGS (6)
  1. FLUOROURACIL. [Suspect]
     Active Substance: FLUOROURACIL
     Indication: METASTASES TO LIVER
     Dosage: 3500 MG, QD (CYCLICAL)
     Route: 040
     Dates: start: 20180809
  2. VECTIBIX [Suspect]
     Active Substance: PANITUMUMAB
     Indication: METASTASES TO LIVER
     Dosage: 400 MG, QD
     Route: 042
     Dates: start: 20180809
  3. LUCEN [Concomitant]
     Active Substance: ESOMEPRAZOLE
     Indication: PRODUCT USED FOR UNKNOWN INDICATION
     Dosage: UNK
     Route: 065
  4. TIROSINT [Concomitant]
     Active Substance: LEVOTHYROXINE SODIUM
     Indication: PRODUCT USED FOR UNKNOWN INDICATION
     Dosage: UNK
     Route: 065
  5. OXALIPLATIN. [Suspect]
     Active Substance: OXALIPLATIN
     Indication: METASTASES TO LIVER
     Dosage: 200 MG, QD
     Route: 042
     Dates: start: 20180809
  6. DOXIFLURIDINE [Suspect]
     Active Substance: DOXIFLURIDINE
     Indication: METASTASES TO LIVER
     Dosage: 650 MG, QD
     Route: 042
     Dates: start: 20180809

REACTIONS (7)
  - Flushing [Recovering/Resolving]
  - Dry skin [Recovering/Resolving]
  - Skin fissures [Recovering/Resolving]
  - Eye irritation [Recovering/Resolving]
  - Neuropathy peripheral [Recovering/Resolving]
  - Oedema [Recovering/Resolving]
  - Palmar-plantar erythrodysaesthesia syndrome [Recovering/Resolving]

NARRATIVE: CASE EVENT DATE: 20181213
